FAERS Safety Report 6613303-7 (Version None)
Quarter: 2010Q1

REPORT INFORMATION
  Report Type: 
  Country: None (occurrence: None)
  Receive Date: 20100304
  Receipt Date: 20100222
  Transmission Date: 20100710
  Serious: Yes (Other)
  Sender: FDA-Public Use
  Company Number: PHHY2010GB11007

PATIENT
  Sex: Female

DRUGS (1)
  1. LESCOL [Suspect]
     Indication: BLOOD CHOLESTEROL INCREASED
     Dosage: 80 MG, UNK
     Dates: end: 20100212

REACTIONS (5)
  - AMNESIA [None]
  - BURNING SENSATION [None]
  - DEPRESSION [None]
  - INSOMNIA [None]
  - PAIN IN EXTREMITY [None]
